FAERS Safety Report 10443721 (Version 3)
Quarter: 2014Q3

REPORT INFORMATION
  Report Type: Spontaneous
  Country: JP (occurrence: JP)
  Receive Date: 20140910
  Receipt Date: 20140922
  Transmission Date: 20150326
  Serious: Yes (Disabling, Other)
  Sender: FDA-Public Use
  Company Number: PHHY2014JP096623

PATIENT
  Age: 63 Year
  Sex: Female

DRUGS (2)
  1. ZOMETA [Suspect]
     Active Substance: ZOLEDRONIC ACID
     Indication: BREAST CANCER METASTATIC
     Dosage: 4 MG, EVERY FOUR WEEKS
     Route: 041
  2. ANASTROZOLE. [Concomitant]
     Active Substance: ANASTROZOLE
     Route: 048

REACTIONS (3)
  - Atypical femur fracture [Recovered/Resolved]
  - Fall [Unknown]
  - Pain [Recovered/Resolved]

NARRATIVE: CASE EVENT DATE: 2013
